FAERS Safety Report 20838509 (Version 1)
Quarter: 2022Q2

REPORT INFORMATION
  Report Type: Spontaneous
  Country: DE (occurrence: None)
  Receive Date: 20220517
  Receipt Date: 20220517
  Transmission Date: 20220721
  Serious: Yes (Other)
  Sender: FDA-Public Use
  Company Number: 2022A180342

PATIENT
  Sex: Female

DRUGS (2)
  1. LYNPARZA [Suspect]
     Active Substance: OLAPARIB
     Indication: Breast cancer
     Dosage: 100.0MG UNKNOWN
     Route: 048
  2. NITRENDIPINE [Concomitant]
     Active Substance: NITRENDIPINE
     Route: 065

REACTIONS (1)
  - Hypertension [Unknown]
